FAERS Safety Report 20264317 (Version 2)
Quarter: 2022Q2

REPORT INFORMATION
  Report Type: Report from Study
  Country: NL (occurrence: NL)
  Receive Date: 20211231
  Receipt Date: 20220503
  Transmission Date: 20220720
  Serious: Yes (Hospitalization, Other)
  Sender: FDA-Public Use
  Company Number: NL-ABBVIE-18K-114-2281129-00

PATIENT
  Sex: Female

DRUGS (14)
  1. CARBIDOPA\LEVODOPA [Suspect]
     Active Substance: CARBIDOPA\LEVODOPA
     Indication: Parkinson^s disease
     Dosage: MD 11, CD 2.8ML?20 MG/ML 5 MG/ML
     Route: 050
     Dates: start: 201802, end: 2018
  2. CARBIDOPA\LEVODOPA [Suspect]
     Active Substance: CARBIDOPA\LEVODOPA
     Dosage: MD 10, CD 2.5ML
     Route: 050
     Dates: start: 2018, end: 2018
  3. CARBIDOPA\LEVODOPA [Suspect]
     Active Substance: CARBIDOPA\LEVODOPA
     Dosage: MD 10, CD 2.3, ED 2ML
     Route: 050
     Dates: start: 2018
  4. CARBIDOPA\LEVODOPA [Suspect]
     Active Substance: CARBIDOPA\LEVODOPA
     Dosage: MD: 10.0, CD: 2.4, ED: 2.5
     Route: 050
  5. CARBIDOPA\LEVODOPA [Suspect]
     Active Substance: CARBIDOPA\LEVODOPA
     Dosage: CD INCREASED ,MD 10.5 CD 2.2 ED 2.5
     Route: 050
  6. CARBIDOPA\LEVODOPA [Suspect]
     Active Substance: CARBIDOPA\LEVODOPA
     Dosage: MD 10.5 ML, CD 2.1 ML/H, ED 2.5 ML
     Route: 050
  7. CARBIDOPA\LEVODOPA [Suspect]
     Active Substance: CARBIDOPA\LEVODOPA
     Dosage: MD:10.5ML, CD:2.1ML/H, ED:2.0ML
     Route: 050
  8. CARBIDOPA\LEVODOPA [Suspect]
     Active Substance: CARBIDOPA\LEVODOPA
     Dosage: MD 10.5 ML, CD 2.2 ML/H, ED 2.5 ML
     Route: 050
  9. CARBIDOPA\LEVODOPA [Suspect]
     Active Substance: CARBIDOPA\LEVODOPA
     Dosage: MD 10.5 ML, CD 2.1 ML/H, ED 2.5 ML
     Route: 050
  10. CARBIDOPA\LEVODOPA [Suspect]
     Active Substance: CARBIDOPA\LEVODOPA
     Dosage: DOSAGE AS AGREED. CD: 2.2ML IF NECESSARY 5X2ML EXTRA
     Route: 050
  11. CARBIDOPA\LEVODOPA [Suspect]
     Active Substance: CARBIDOPA\LEVODOPA
     Dosage: MD:10.5ML, CD:2.1ML/H, ED:2.0ML
     Route: 050
  12. BUPRENORPHINE [Concomitant]
     Active Substance: BUPRENORPHINE
     Indication: Pain in extremity
     Dosage: 5 UG/HOUR; ON THURSDAYS
     Route: 003
  13. BENSERAZIDE HYDROCHLORIDE\LEVODOPA [Concomitant]
     Active Substance: BENSERAZIDE HYDROCHLORIDE\LEVODOPA
     Indication: Parkinson^s disease
     Dosage: ONE PIECE; 100/25 MG?AFTER DISCONNECTING THE PUMP
     Route: 003
  14. MOVICOLON [Concomitant]
     Active Substance: POLYETHYLENE GLYCOL 3350\POTASSIUM CHLORIDE\SODIUM BICARBONATE\SODIUM CHLORIDE
     Indication: Defaecation disorder

REACTIONS (63)
  - Urinary retention [Recovered/Resolved]
  - Confusional state [Recovered/Resolved]
  - Pneumoperitoneum [Unknown]
  - Mobility decreased [Not Recovered/Not Resolved]
  - Emotional disorder [Not Recovered/Not Resolved]
  - Discomfort [Not Recovered/Not Resolved]
  - Device connection issue [Not Recovered/Not Resolved]
  - Arthralgia [Not Recovered/Not Resolved]
  - Dyschezia [Not Recovered/Not Resolved]
  - Bowel movement irregularity [Recovered/Resolved]
  - Tension [Not Recovered/Not Resolved]
  - General physical health deterioration [Not Recovered/Not Resolved]
  - Nasal congestion [Not Recovered/Not Resolved]
  - Nasal obstruction [Not Recovered/Not Resolved]
  - Upper limb fracture [Not Recovered/Not Resolved]
  - Pain in extremity [Not Recovered/Not Resolved]
  - Dyschezia [Unknown]
  - Dependent personality disorder [Not Recovered/Not Resolved]
  - Memory impairment [Not Recovered/Not Resolved]
  - Urinary tract infection [Unknown]
  - Pharyngeal disorder [Not Recovered/Not Resolved]
  - Impaired quality of life [Unknown]
  - Drug level fluctuating [Unknown]
  - Illness [Not Recovered/Not Resolved]
  - Decreased appetite [Recovered/Resolved]
  - Gait disturbance [Not Recovered/Not Resolved]
  - Fatigue [Not Recovered/Not Resolved]
  - Weight decreased [Not Recovered/Not Resolved]
  - Chest pain [Not Recovered/Not Resolved]
  - Delirium [Unknown]
  - Dysphonia [Not Recovered/Not Resolved]
  - Respiration abnormal [Not Recovered/Not Resolved]
  - Dyspnoea [Not Recovered/Not Resolved]
  - Stoma site erythema [Recovered/Resolved]
  - Stoma site discharge [Recovered/Resolved]
  - On and off phenomenon [Not Recovered/Not Resolved]
  - Stoma site pain [Not Recovered/Not Resolved]
  - Dyskinesia [Not Recovered/Not Resolved]
  - Nausea [Not Recovered/Not Resolved]
  - Muscle rigidity [Unknown]
  - Adverse drug reaction [Unknown]
  - Hallucination, visual [Not Recovered/Not Resolved]
  - Unevaluable event [Recovered/Resolved]
  - Therapeutic product effect incomplete [Recovered/Resolved]
  - Stoma site erythema [Recovered/Resolved]
  - Nausea [Not Recovered/Not Resolved]
  - Hallucination [Recovered/Resolved]
  - Pain [Not Recovered/Not Resolved]
  - Confusional state [Not Recovered/Not Resolved]
  - Unevaluable event [Not Recovered/Not Resolved]
  - Device issue [Unknown]
  - Device difficult to use [Unknown]
  - Extra dose administered [Not Recovered/Not Resolved]
  - Muscle spasms [Not Recovered/Not Resolved]
  - On and off phenomenon [Unknown]
  - Depressed mood [Not Recovered/Not Resolved]
  - Depression [Not Recovered/Not Resolved]
  - Stress [Not Recovered/Not Resolved]
  - Nocturia [Not Recovered/Not Resolved]
  - Dyskinesia [Unknown]
  - Atelectasis [Unknown]
  - Arthritis [Unknown]
  - X-ray limb abnormal [Unknown]

NARRATIVE: CASE EVENT DATE: 20180101
